FAERS Safety Report 9837106 (Version 1)
Quarter: 2013Q4

REPORT INFORMATION
  Report Type: Spontaneous
  Country: US (occurrence: None)
  Receive Date: 20131121
  Receipt Date: 20131121
  Transmission Date: 20140711
  Serious: No
  Sender: FDA-Public Use
  Company Number: 1000048685

PATIENT
  Age: 86 Year
  Sex: Female

DRUGS (11)
  1. TUDORZA PRESSAIR (ACLIDINIUM BROMIDE) (400 MICROGRAM, POWDER) [Suspect]
     Indication: CHRONIC OBSTRUCTIVE PULMONARY DISEASE
     Dosage: 800 MCG (400 MCG, 2 IN 1 D, RESPIRATORY (INHALATION)
     Route: 055
     Dates: start: 2013
  2. WARFARIN (WARFARIN) (WARFARIN) [Concomitant]
  3. SYNTHROID (LEVOTHYROXINE SODIUM) (LEVOTHYROXINE SODIUM) [Concomitant]
  4. ACIPHEX (RABEPRAZOLE SODIUM) (RABEPRAZOLE SODIUM) [Concomitant]
  5. HYDROCHLOROTHIAZIDE (HYDROCHLOROTHIAZIDE) (HYDROCHLOROTHIAZIDE) [Concomitant]
  6. XYZAL [Concomitant]
  7. BISOPROLOL (BISOPROLOL) (BISOPROLOL) [Concomitant]
  8. CALCIUM (CALCIUM) (CALCIUM) [Concomitant]
  9. VITAMIN D (VITAMIN D) (VITAMIN D) [Concomitant]
  10. MVI (VITAMINS NOS) (VITAMINS NOS) [Concomitant]
  11. D-MANNOSE (D-MANNOSE) (D-MANNOSE) [Concomitant]

REACTIONS (5)
  - Hypertonic bladder [None]
  - Epistaxis [None]
  - Diarrhoea [None]
  - Flatulence [None]
  - Tremor [None]
